FAERS Safety Report 20585150 (Version 7)
Quarter: 2022Q3

REPORT INFORMATION
  Report Type: Report from Study
  Country: GB (occurrence: GB)
  Receive Date: 20220311
  Receipt Date: 20220727
  Transmission Date: 20221026
  Serious: Yes (Hospitalization, Disabling, Other)
  Sender: FDA-Public Use
  Company Number: GB-ROCHE-2522368

PATIENT
  Age: 64 Year
  Sex: Female

DRUGS (57)
  1. CYCLOPHOSPHAMIDE [Suspect]
     Active Substance: CYCLOPHOSPHAMIDE
     Indication: HER2 positive breast cancer
     Dosage: 1000 MG, EVERY 3 WK (ALSO DISCREPANTLY REPORTED AS TIW) (INTRAVENOUS OTHERWISE NOT SPECIFIED)
     Route: 042
     Dates: start: 20201019, end: 20201109
  2. CYCLOPHOSPHAMIDE [Suspect]
     Active Substance: CYCLOPHOSPHAMIDE
     Indication: Breast cancer metastatic
     Dosage: 900 MG, EVERY 3 WK (ALSO DISCREPANTLY REPORTED AS TIW) (INTRAVENOUS OTHERWISE NOT SPECIFIED), NUMBER
     Route: 042
     Dates: start: 20201130, end: 20210201
  3. XELODA [Suspect]
     Active Substance: CAPECITABINE
     Indication: Breast cancer metastatic
     Dosage: 1500 MG, BID
     Route: 048
     Dates: start: 20180809, end: 202009
  4. XELODA [Suspect]
     Active Substance: CAPECITABINE
     Indication: HER2 positive breast cancer
     Dosage: 1500 MG, QD (0.5 D), INTRAVENOUS NOT OTHERWISE  SPECIFIED
     Route: 042
     Dates: start: 20180809, end: 202009
  5. XELODA [Suspect]
     Active Substance: CAPECITABINE
     Dosage: 3000 MG, QD
     Route: 048
     Dates: start: 20180809
  6. DOCETAXEL [Suspect]
     Active Substance: DOCETAXEL
     Indication: Breast cancer metastatic
     Dosage: 100 MG, EVERY 3 WK (DISCREPANTLY REPORTED AS TIW), 6 CYCLES (PLANNED NUMBER OF CYCLES COMPLETED), IN
     Route: 042
     Dates: start: 20170508, end: 20170829
  7. DOCETAXEL [Suspect]
     Active Substance: DOCETAXEL
     Indication: HER2 positive breast cancer
  8. PERJETA [Suspect]
     Active Substance: PERTUZUMAB
     Indication: Breast cancer metastatic
     Dosage: 840 MG, EVERY 3 WK (ALSO DISCREPANTLY REPORTED AS TIW), DOSE MODIFIED, INTRAVENOUS NOT OTHERWISE SPE
     Route: 042
     Dates: start: 20170508, end: 20170508
  9. PERJETA [Suspect]
     Active Substance: PERTUZUMAB
     Indication: HER2 positive breast cancer
     Dosage: 420 MG, EVERY 3 WK (ALSO DISCREPANTLY REPORTED AS TIW), (PLANNED NUMBER OF CYCLES), INTRAVENOUS NOT
     Route: 042
     Dates: start: 20170520, end: 20180103
  10. PERJETA [Suspect]
     Active Substance: PERTUZUMAB
     Dosage: 420 MG, EVERY 3 WK (ALSO DISCREPANTLY REPORTED AS TIW), (PLANNED NUMBER OF CYCLES COMPLETED),ROUTE:I
     Route: 042
     Dates: start: 20170529, end: 20180103
  11. PERJETA [Suspect]
     Active Substance: PERTUZUMAB
     Dosage: 420 MG, Q3W- EVERY 3 WK
     Route: 065
     Dates: start: 20170520, end: 20180103
  12. HERCEPTIN [Suspect]
     Active Substance: TRASTUZUMAB
     Indication: Breast cancer metastatic
     Dosage: 483 MG, EVERY 3 WK,(DOSE MODIFIED)
     Route: 041
     Dates: start: 20170508, end: 20170508
  13. HERCEPTIN [Suspect]
     Active Substance: TRASTUZUMAB
     Indication: HER2 positive breast cancer
     Dosage: 375 MG, Q3W, DOSE MODIFIED (MODIFIED DUE TO WEIGHT BUT FULL DOSE GIVEN. NEW DOSE ALREADY REPORTED),
     Route: 042
     Dates: start: 20170529, end: 20170829
  14. HERCEPTIN [Suspect]
     Active Substance: TRASTUZUMAB
     Dosage: 336 MG, EVERY 3 WK- Q3W, 6 CYCLES, DOSE MODIFIED, INTAVENOUS OTHERWISE NOT SPECIFIED
     Route: 042
     Dates: start: 20170920, end: 20180103
  15. HERCEPTIN [Suspect]
     Active Substance: TRASTUZUMAB
     Dosage: 483 MG, EVERY 3 WK,INTRAVENOUS OTHERWISE NOT SPECIFIED, TIW (6 CYCLES,DOSE MODIFIED),(MODIFIED DUE T
     Route: 042
     Dates: start: 20170508, end: 20170508
  16. KADCYLA [Suspect]
     Active Substance: ADO-TRASTUZUMAB EMTANSINE
     Indication: Breast cancer metastatic
     Dosage: 220 MG, EVERY 3 WK (ALSO DISCREPANTLY REPORTED AS TIW), INTRAVENOUS NOT OTHERWISE SPECIFIED
     Route: 042
     Dates: start: 20180420, end: 20180622
  17. KADCYLA [Suspect]
     Active Substance: ADO-TRASTUZUMAB EMTANSINE
     Indication: HER2 positive breast cancer
  18. EPIRUBICIN [Suspect]
     Active Substance: EPIRUBICIN
     Indication: Breast cancer metastatic
     Dosage: 120 MG, EVERY 3 WK, PLANNED NUMBER OF CYCLES COMPLETED, INTRAVENOUS NOT OTHERWISE SPECIFIED
     Route: 042
     Dates: start: 20201019, end: 20210201
  19. AMITRIPTYLINE HYDROCHLORIDE [Concomitant]
     Active Substance: AMITRIPTYLINE HYDROCHLORIDE
     Indication: Depression
     Dosage: 10 MG
     Route: 048
     Dates: start: 2017
  20. AMITRIPTYLINE HYDROCHLORIDE [Concomitant]
     Active Substance: AMITRIPTYLINE HYDROCHLORIDE
     Indication: Anxiety
     Dosage: UNK
     Route: 065
  21. ATORVASTATIN [Concomitant]
     Active Substance: ATORVASTATIN
     Indication: Ejection fraction decreased
     Dosage: 40 MG, QD
     Route: 048
     Dates: start: 2017, end: 20210831
  22. BETAHISTINE [Concomitant]
     Active Substance: BETAHISTINE
     Indication: Adverse event
     Dosage: 16 MG, TID
     Route: 048
     Dates: start: 20200102, end: 202002
  23. CARVEDILOL [Concomitant]
     Active Substance: CARVEDILOL
     Indication: Adverse event
     Dosage: 6.25 MG, BID
     Route: 048
     Dates: start: 20180130, end: 20210831
  24. CARVEDILOL [Concomitant]
     Active Substance: CARVEDILOL
     Indication: Ejection fraction decreased
     Dosage: UNK
     Route: 065
  25. CLARITHROMYCIN [Concomitant]
     Active Substance: CLARITHROMYCIN
     Indication: Adverse event
     Dosage: 500 MG, BID
     Route: 048
     Dates: start: 20210705, end: 20210711
  26. AMOXICILLIN\CLAVULANATE POTASSIUM [Concomitant]
     Active Substance: AMOXICILLIN\CLAVULANATE POTASSIUM
     Indication: Pyrexia
     Dosage: 625 MG, QD
     Route: 048
     Dates: start: 20190411, end: 20190417
  27. AMOXICILLIN\CLAVULANATE POTASSIUM [Concomitant]
     Active Substance: AMOXICILLIN\CLAVULANATE POTASSIUM
     Dosage: 625 MG, TID
     Route: 048
     Dates: start: 20210705, end: 20210711
  28. AMOXICILLIN\CLAVULANATE POTASSIUM [Concomitant]
     Active Substance: AMOXICILLIN\CLAVULANATE POTASSIUM
     Dosage: 1875 MG, QD
     Route: 048
     Dates: start: 20190411, end: 20190417
  29. CODEINE PHOSPHATE [Concomitant]
     Active Substance: CODEINE PHOSPHATE
     Indication: Pain
     Dosage: 30 MG, QID,
     Route: 048
     Dates: start: 20200710, end: 20200812
  30. DALTEPARIN [Concomitant]
     Active Substance: DALTEPARIN
     Indication: Adverse event
     Dosage: 12500 U
     Route: 058
     Dates: start: 20200402, end: 20200402
  31. DEXAMETHASONE [Concomitant]
     Active Substance: DEXAMETHASONE
     Indication: Product used for unknown indication
     Dosage: 16 MG
     Route: 048
     Dates: start: 20210729, end: 20210831
  32. DEXAMETHASONE [Concomitant]
     Active Substance: DEXAMETHASONE
     Dosage: 4 MG
     Route: 048
     Dates: start: 20201019, end: 20210201
  33. DEXAMETHASONE SODIUM PHOSPHATE [Concomitant]
     Active Substance: DEXAMETHASONE SODIUM PHOSPHATE
     Indication: Product used for unknown indication
     Dosage: 8 MG, INTRAVENOUS OTHERWISE NOT SPECIFIED
     Route: 042
     Dates: start: 20201019, end: 20210201
  34. DIAH LIMIT [Concomitant]
     Indication: Product used for unknown indication
     Dosage: (WOCKHARDT UK LOPERAMIDE)
     Route: 065
  35. DOCUSATE SODIUM [Concomitant]
     Active Substance: DOCUSATE SODIUM
     Indication: Product used for unknown indication
     Dosage: 200 MG
     Route: 048
     Dates: start: 20201019, end: 20210831
  36. DOMPERIDONE [Concomitant]
     Active Substance: DOMPERIDONE
     Indication: Product used for unknown indication
     Dosage: 10 MG
     Route: 048
     Dates: start: 20201019, end: 20201025
  37. FUROSEMIDE [Concomitant]
     Active Substance: FUROSEMIDE
     Indication: Ejection fraction decreased
     Dosage: 20 MG, QD
     Route: 048
     Dates: start: 20180406, end: 20190128
  38. LANSOPRAZOLE [Concomitant]
     Active Substance: LANSOPRAZOLE
     Indication: Gastrooesophageal reflux disease
     Dosage: 30 MG  (0.5 D), BID
     Route: 048
     Dates: start: 20170905, end: 20210831
  39. LANSOPRAZOLE [Concomitant]
     Active Substance: LANSOPRAZOLE
     Dosage: 60 MG, QD
     Route: 048
     Dates: start: 20170905
  40. POLYETHYLENE GLYCOL 3350\POTASSIUM CHLORIDE\SODIUM BICARBONATE\SODIUM [Concomitant]
     Active Substance: POLYETHYLENE GLYCOL 3350\POTASSIUM CHLORIDE\SODIUM BICARBONATE\SODIUM CHLORIDE
     Indication: Adverse event
     Dosage: 2 DOSAGE FORM, BID
     Route: 048
     Dates: start: 20201014, end: 20210831
  41. LISINOPRIL [Concomitant]
     Active Substance: LISINOPRIL
     Indication: Ejection fraction decreased
     Dosage: 20 MG, QD
     Route: 048
     Dates: start: 20180130, end: 20210831
  42. MIRTAZAPINE [Concomitant]
     Active Substance: MIRTAZAPINE
     Indication: Insomnia
     Dosage: 15 MG
     Route: 048
     Dates: start: 20210608, end: 20210831
  43. MORPHINE SULFATE [Concomitant]
     Active Substance: MORPHINE SULFATE
     Indication: Pain
     Dosage: 30 MG, BID
     Route: 048
     Dates: end: 20210615
  44. MORPHINE SULFATE [Concomitant]
     Active Substance: MORPHINE SULFATE
     Indication: Adverse event
     Dosage: 40 MG, BID
     Route: 048
     Dates: start: 20210616, end: 20210831
  45. MORPHINE SULFATE [Concomitant]
     Active Substance: MORPHINE SULFATE
     Dosage: UNK
     Route: 065
     Dates: start: 201912, end: 2020
  46. MORPHINE SULFATE [Concomitant]
     Active Substance: MORPHINE SULFATE
     Dosage: 10 MG
     Route: 048
     Dates: end: 20210831
  47. OMEPRAZOLE [Concomitant]
     Active Substance: OMEPRAZOLE
     Indication: Dyspepsia
     Dosage: 20 MG, QD
     Route: 048
     Dates: end: 20210831
  48. OMEPRAZOLE [Concomitant]
     Active Substance: OMEPRAZOLE
     Indication: Dyspepsia
  49. ONDANSETRON [Concomitant]
     Active Substance: ONDANSETRON
     Indication: Product used for unknown indication
     Dosage: 8 MG
     Route: 048
     Dates: start: 20201019, end: 20210201
  50. MORPHINE SULFATE [Concomitant]
     Active Substance: MORPHINE SULFATE
     Indication: Adverse event
     Dosage: 10 MG
     Route: 048
     Dates: end: 20210831
  51. MORPHINE SULFATE [Concomitant]
     Active Substance: MORPHINE SULFATE
     Dosage: UNK
     Route: 048
     Dates: start: 201912, end: 2020
  52. ACETAMINOPHEN [Concomitant]
     Active Substance: ACETAMINOPHEN
     Indication: Adverse event
     Dosage: UNK
     Route: 048
     Dates: start: 201912, end: 2020
  53. SENNA LEAF [Concomitant]
     Active Substance: SENNA LEAF
     Indication: Adverse event
     Dosage: 15 MG, QD
     Route: 048
     Dates: start: 20201014, end: 20210831
  54. ZOLEDRONIC ACID [Concomitant]
     Active Substance: ZOLEDRONIC ACID
     Indication: Adverse event
     Dosage: 4 MG, INTRAVENOUS OTHERWISE NOT SPECIFIED
     Route: 042
     Dates: start: 20201109, end: 20210705
  55. ZOLEDRONIC ACID [Concomitant]
     Active Substance: ZOLEDRONIC ACID
     Indication: Product used for unknown indication
  56. SENNA [Concomitant]
     Active Substance: SENNA LEAF\SENNOSIDES\SENNOSIDES A AND B
     Indication: Product used for unknown indication
     Dosage: UNK
     Route: 065
  57. MORPHINE SULFATE [Concomitant]
     Active Substance: MORPHINE SULFATE
     Indication: Product used for unknown indication
     Dosage: UNK
     Route: 065

REACTIONS (7)
  - Pleuritic pain [Recovered/Resolved]
  - Abdominal distension [Recovered/Resolved with Sequelae]
  - Musculoskeletal chest pain [Unknown]
  - Headache [Not Recovered/Not Resolved]
  - Chest pain [Unknown]
  - Visual impairment [Unknown]
  - Vertigo [Recovering/Resolving]

NARRATIVE: CASE EVENT DATE: 20191201
